FAERS Safety Report 9637777 (Version 1)
Quarter: 2013Q4

REPORT INFORMATION
  Report Type: Spontaneous
  Country: FR (occurrence: FR)
  Receive Date: 20131022
  Receipt Date: 20131022
  Transmission Date: 20140711
  Serious: Yes (Hospitalization)
  Sender: FDA-Public Use
  Company Number: FR-SA-2013SA104148

PATIENT
  Age: 23 Year
  Sex: Female

DRUGS (4)
  1. STILNOX [Suspect]
     Indication: MANIA
     Route: 048
     Dates: start: 20130920, end: 20130923
  2. ATARAX [Suspect]
     Indication: MANIA
     Route: 048
     Dates: start: 20130920, end: 20130923
  3. ABILIFY [Concomitant]
     Indication: MANIA
     Dosage: STRENGTH-15 MG
     Route: 048
     Dates: start: 20130920
  4. MESTINON [Concomitant]
     Indication: MUSCULAR WEAKNESS
     Dosage: STRENGTH-180 MG
     Route: 048

REACTIONS (4)
  - Myasthenia gravis crisis [Recovered/Resolved]
  - Asthenia [Recovered/Resolved]
  - Dysphagia [Recovered/Resolved]
  - Muscular weakness [Recovered/Resolved]
